FAERS Safety Report 20103688 (Version 1)
Quarter: 2021Q4

REPORT INFORMATION
  Report Type: Spontaneous
  Country: US (occurrence: None)
  Receive Date: 20211123
  Receipt Date: 20211123
  Transmission Date: 20220303
  Serious: No
  Sender: FDA-Public Use
  Company Number: None

PATIENT
  Age: 68 Year
  Sex: Male
  Weight: 84 kg

DRUGS (14)
  1. ABIRATERONE [Suspect]
     Active Substance: ABIRATERONE
     Indication: Prostate cancer
     Dosage: FREQUENCY : DAILY;?
     Route: 048
     Dates: start: 20201006, end: 20211118
  2. VITAMIN B12 1000MCG [Concomitant]
  3. TRIAMCINOLONE [Concomitant]
     Active Substance: TRIAMCINOLONE
  4. OMEPRAZOLE [Concomitant]
     Active Substance: OMEPRAZOLE
  5. VITAMINS [Concomitant]
     Active Substance: VITAMINS
  6. OSTEO BI-FLEX ADV DOUBLE STRENGTH [Concomitant]
  7. GARLIC 1000MG [Concomitant]
  8. XGEVA [Concomitant]
     Active Substance: DENOSUMAB
  9. VITAMIN D 125MCG [Concomitant]
  10. CALCIUM CITRATE-VITAMIN D 1200MG [Concomitant]
  11. FERROUS SULFATE 27MG [Concomitant]
  12. LUPRON DEPOT [Concomitant]
     Active Substance: LEUPROLIDE ACETATE
  13. COMBIGAN [Concomitant]
     Active Substance: BRIMONIDINE TARTRATE\TIMOLOL MALEATE
  14. SOMA 350MG [Concomitant]

REACTIONS (1)
  - Prostatic specific antigen increased [None]

NARRATIVE: CASE EVENT DATE: 20211118
